FAERS Safety Report 8814751 (Version 2)
Quarter: 2012Q4

REPORT INFORMATION
  Report Type: 
  Country: US (occurrence: US)
  Receive Date: 20120928
  Receipt Date: 20121015
  Transmission Date: 20130627
  Serious: Yes (Other)
  Sender: FDA-Public Use
  Company Number: US-PFIZER INC-2012171809

PATIENT
  Age: 79 Year
  Sex: Female
  Weight: 70.3 kg

DRUGS (12)
  1. LYRICA [Suspect]
     Indication: NEUROPATHY PERIPHERAL
     Dosage: 25mg in to half, daily
     Route: 048
     Dates: start: 20120715
  2. LYRICA [Interacting]
     Dosage: 50mg and 100mg at night
  3. LYRICA [Interacting]
     Dosage: 25 mg, daily
     Dates: start: 201207
  4. LYRICA [Interacting]
     Dosage: 200 mg, daily
  5. NITROFURANTOIN [Interacting]
     Indication: URINARY TRACT INFECTION
     Dosage: 100 mg, 2x/day
     Dates: start: 20120924, end: 20120926
  6. CELEXA [Concomitant]
     Indication: DEPRESSION
     Dosage: 20 mg, daily
  7. PROPRANOLOL [Concomitant]
     Indication: TREMOR
     Dosage: 20 mg, 2x/day
  8. LITHIUM CARBONATE [Concomitant]
     Dosage: 150 mg, 2x/day
  9. PRIMIDONE [Concomitant]
     Indication: TREMOR
     Dosage: 50 mg, daily
  10. ASPIRIN [Concomitant]
     Dosage: 81 mg, daily
  11. BUSPAR [Concomitant]
     Indication: DEPRESSION
     Dosage: 5 mg, 4x/day
     Dates: start: 201205
  12. BUSPAR [Concomitant]
     Indication: BIPOLAR DISORDER
     Dosage: 15 mg, 2x/day
     Dates: start: 2012

REACTIONS (7)
  - Urinary tract infection [Recovered/Resolved]
  - Wrong technique in drug usage process [Unknown]
  - Drug interaction [Unknown]
  - Pain [Not Recovered/Not Resolved]
  - Weight increased [Unknown]
  - Increased appetite [Unknown]
  - Drug intolerance [Unknown]
